FAERS Safety Report 14251403 (Version 2)
Quarter: 2018Q1

REPORT INFORMATION
  Report Type: Spontaneous
  Country: US (occurrence: US)
  Receive Date: 20171205
  Receipt Date: 20180216
  Transmission Date: 20180508
  Serious: Yes (Death, Other)
  Sender: FDA-Public Use
  Company Number: US-JNJFOC-20171203076

PATIENT
  Age: 70 Year
  Sex: Female

DRUGS (1)
  1. XARELTO [Suspect]
     Active Substance: RIVAROXABAN
     Indication: PRODUCT USED FOR UNKNOWN INDICATION
     Route: 048
     Dates: start: 20120101, end: 20151201

REACTIONS (2)
  - Internal haemorrhage [Unknown]
  - Septic shock [Fatal]

NARRATIVE: CASE EVENT DATE: 201511
